FAERS Safety Report 5241344-3 (Version None)
Quarter: 2007Q1

REPORT INFORMATION
  Report Type: 
  Country: None (occurrence: None)
  Receive Date: 20070220
  Receipt Date: 20070126
  Transmission Date: 20070707
  Serious: Yes (Other)
  Sender: FDA-Public Use
  Company Number: FI-RB-005274-07

PATIENT
  Sex: Female

DRUGS (3)
  1. SUBOXONE [Suspect]
     Route: 060
     Dates: start: 20041102
  2. XANOR [Concomitant]
     Indication: DRUG USE FOR UNKNOWN INDICATION
     Dosage: DOSAGE UNKNOWN
     Route: 048
  3. TENOX [Concomitant]
     Dosage: DOSAGE UNKNOWN
     Route: 048

REACTIONS (5)
  - DENTAL CARIES [None]
  - ECZEMA [None]
  - ENAMEL ANOMALY [None]
  - TOOTH EROSION [None]
  - TOOTH REPAIR [None]
